FAERS Safety Report 9421687 (Version 2)
Quarter: 2014Q4

REPORT INFORMATION
  Report Type: Report from Study
  Country: US (occurrence: US)
  Receive Date: 20130726
  Receipt Date: 20141028
  Transmission Date: 20150529
  Serious: Yes (Hospitalization)
  Sender: FDA-Public Use
  Company Number: US-009507513-1307USA007381

PATIENT
  Age: 57 Year
  Sex: Female
  Weight: 79.82 kg

DRUGS (9)
  1. EZETIMIBE AND SIMVASTATIN [Suspect]
     Active Substance: EZETIMIBE\SIMVASTATIN
     Indication: ACUTE CORONARY SYNDROME
     Dosage: UNK
     Route: 048
     Dates: start: 20060914
  2. METOPROLOL [Concomitant]
     Active Substance: METOPROLOL
     Dosage: 3.125 MG DAILY
     Route: 048
     Dates: start: 20060911
  3. IBUPROFEN. [Concomitant]
     Active Substance: IBUPROFEN
     Dosage: 200 MG DAILY
     Route: 048
     Dates: start: 20060911
  4. LISINOPRIL. [Suspect]
     Active Substance: LISINOPRIL
     Dosage: 10 MG DAILY
     Route: 048
     Dates: start: 20060911
  5. ASPIRIN. [Concomitant]
     Active Substance: ASPIRIN
     Dosage: 81 MG DDAILY
     Route: 048
     Dates: start: 20090911
  6. ZOLOFT [Concomitant]
     Active Substance: SERTRALINE HYDROCHLORIDE
     Dosage: 50 MG DAILY
     Route: 048
     Dates: start: 20060911
  7. XANAX [Concomitant]
     Active Substance: ALPRAZOLAM
     Dosage: 0.25 MG DAILY
     Route: 048
     Dates: start: 20060911
  8. RANITIDINE [Concomitant]
     Active Substance: RANITIDINE\RANITIDINE HYDROCHLORIDE
     Dosage: 150 MG DAILY
     Route: 048
     Dates: start: 20120928
  9. AMBIEN [Concomitant]
     Active Substance: ZOLPIDEM TARTRATE
     Dosage: 10 MG DAILY
     Route: 048
     Dates: start: 20060911

REACTIONS (1)
  - Humerus fracture [Recovered/Resolved]

NARRATIVE: CASE EVENT DATE: 20130430
